FAERS Safety Report 6984955-7 (Version None)
Quarter: 2010Q3

REPORT INFORMATION
  Report Type: 
  Country: None (occurrence: None)
  Receive Date: 20100915
  Receipt Date: 20100902
  Transmission Date: 20110219
  Serious: Yes (Other)
  Sender: FDA-Public Use
  Company Number: NZ-ELI_LILLY_AND_COMPANY-NZ201009000787

PATIENT
  Age: 53 Year
  Sex: Female

DRUGS (4)
  1. ZYPREXA [Suspect]
     Indication: SCHIZOPHRENIA
     Dosage: 7.5 MG, EACH MORNING
     Route: 065
     Dates: start: 20080401
  2. ZYPREXA [Suspect]
     Dosage: 35 MG, EACH EVENING
     Route: 065
     Dates: start: 20080401
  3. LITHIUM CARBONATE [Concomitant]
     Dosage: 400 MG, UNKNOWN
     Route: 065
  4. VALPROATE SODIUM [Concomitant]
     Dosage: 2600 MG, UNKNOWN
     Route: 065

REACTIONS (2)
  - LUNG NEOPLASM MALIGNANT [None]
  - OVERDOSE [None]
